FAERS Safety Report 9694413 (Version 2)
Quarter: 2014Q1

REPORT INFORMATION
  Report Type: Spontaneous
  Country: US (occurrence: US)
  Receive Date: 20131118
  Receipt Date: 20140313
  Transmission Date: 20141002
  Serious: Yes (Death)
  Sender: FDA-Public Use
  Company Number: US-CUBIST PHARMACEUTICAL, INC.-2013CBST001138

PATIENT
  Sex: 0

DRUGS (2)
  1. CUBICIN [Suspect]
     Indication: ENDOCARDITIS STAPHYLOCOCCAL
     Dosage: MORE THAN OR EQUAL TO 8 MG/KG/DAY FOR ATLEAST 72 HOURS
     Route: 065
  2. CUBICIN [Suspect]
     Indication: OFF LABEL USE

REACTIONS (6)
  - Endocarditis staphylococcal [Fatal]
  - Meningitis staphylococcal [Fatal]
  - Embolic stroke [Fatal]
  - Haemorrhagic stroke [Fatal]
  - Subarachnoid haemorrhage [Fatal]
  - Prostatic abscess [Fatal]
